FAERS Safety Report 7105469-X (Version None)
Quarter: 2010Q4

REPORT INFORMATION
  Report Type: 
  Country: None (occurrence: None)
  Receive Date: 20101110
  Receipt Date: 20101027
  Transmission Date: 20110411
  Serious: Yes (Other)
  Sender: FDA-Public Use
  Company Number: JPI-P-012859

PATIENT
  Age: 42 Year
  Sex: Female
  Weight: 40.8237 kg

DRUGS (21)
  1. XYREM [Suspect]
     Indication: FIBROMYALGIA
     Dosage: SEE IMAGE
     Route: 048
     Dates: start: 20080101, end: 20080101
  2. XYREM [Suspect]
     Indication: INSOMNIA
     Dosage: SEE IMAGE
     Route: 048
     Dates: start: 20080101, end: 20080101
  3. XYREM [Suspect]
     Indication: FIBROMYALGIA
     Dosage: SEE IMAGE
     Route: 048
     Dates: start: 20080417, end: 20080101
  4. XYREM [Suspect]
     Indication: INSOMNIA
     Dosage: SEE IMAGE
     Route: 048
     Dates: start: 20080417, end: 20080101
  5. XYREM [Suspect]
     Indication: FIBROMYALGIA
     Dosage: SEE IMAGE
     Route: 048
     Dates: start: 20081201
  6. XYREM [Suspect]
     Indication: INSOMNIA
     Dosage: SEE IMAGE
     Route: 048
     Dates: start: 20081201
  7. POTASSIUM CHLORIDE [Concomitant]
  8. FLUOXETINE [Concomitant]
  9. SPIRONOLACTONE [Concomitant]
  10. ASCORBIC ACID [Concomitant]
  11. L-METHYLFOLATE [Concomitant]
  12. GABAPENTIN [Concomitant]
  13. MORPHINE SULFATE [Concomitant]
  14. OMEPRAZOLE [Concomitant]
  15. NORCODEINE [Concomitant]
  16. VITAMIN B COMPLEX CAP [Concomitant]
  17. VALACYCLOVIR [Concomitant]
  18. LEVETIRACETAM [Concomitant]
  19. ZINC [Concomitant]
  20. FEXOFENADINE HCL [Concomitant]
  21. ALPRAZOLAM [Concomitant]

REACTIONS (6)
  - CONDITION AGGRAVATED [None]
  - INCORRECT DOSE ADMINISTERED [None]
  - INITIAL INSOMNIA [None]
  - NERVOUSNESS [None]
  - THERAPEUTIC RESPONSE DECREASED [None]
  - VICTIM OF SEXUAL ABUSE [None]
